FAERS Safety Report 10266235 (Version 1)
Quarter: 2014Q2

REPORT INFORMATION
  Report Type: Report from Study
  Country: BR (occurrence: BR)
  Receive Date: 20140627
  Receipt Date: 20140627
  Transmission Date: 20141212
  Serious: Yes (Other)
  Sender: FDA-Public Use
  Company Number: BR-ABBVIE-14P-020-1250759-00

PATIENT
  Sex: Female
  Weight: 67 kg

DRUGS (5)
  1. HUMIRA [Suspect]
     Indication: RHEUMATOID ARTHRITIS
     Route: 058
  2. METHOTREXATE [Concomitant]
     Indication: ARTHRITIS
     Route: 048
  3. FOLIC ACID [Concomitant]
     Indication: ARTHRITIS
     Route: 048
  4. PREDNISONE [Concomitant]
     Indication: ARTHRITIS
     Route: 048
  5. OMEPRAZOLE [Concomitant]
     Indication: GASTRIC DISORDER
     Route: 048

REACTIONS (3)
  - Extremity necrosis [Not Recovered/Not Resolved]
  - Carpal tunnel syndrome [Recovering/Resolving]
  - Muscular weakness [Not Recovered/Not Resolved]
